FAERS Safety Report 18808859 (Version 2)
Quarter: 2021Q2

REPORT INFORMATION
  Report Type: Spontaneous
  Country: CA (occurrence: CA)
  Receive Date: 20210129
  Receipt Date: 20210609
  Transmission Date: 20210717
  Serious: Yes (Other)
  Sender: FDA-Public Use
  Company Number: CA-PFIZER INC-2020252080

PATIENT
  Age: 59 Year
  Sex: Female

DRUGS (2)
  1. XELJANZ [Suspect]
     Active Substance: TOFACITINIB CITRATE
     Indication: DERMATOMYOSITIS
     Dosage: 5 MG, 2X/DAY
     Route: 048
     Dates: start: 202010
  2. MYFORTIC [Concomitant]
     Active Substance: MYCOPHENOLATE SODIUM
     Indication: DERMATOMYOSITIS
     Dosage: 720 MG, 2X/DAY
     Route: 048

REACTIONS (4)
  - Off label use [Unknown]
  - Cytopenia [Unknown]
  - Drug effective for unapproved indication [Unknown]
  - Pain in extremity [Unknown]
